FAERS Safety Report 15648533 (Version 1)
Quarter: 2018Q4

REPORT INFORMATION
  Report Type: Spontaneous
  Country: FR (occurrence: FR)
  Receive Date: 20181122
  Receipt Date: 20181122
  Transmission Date: 20190205
  Serious: Yes (Hospitalization, Other)
  Sender: FDA-Public Use
  Company Number: FR-PROVELL PHARMACEUTICALS-2059212

PATIENT
  Age: 67 Year
  Sex: Female

DRUGS (1)
  1. EUTHYROX [Suspect]
     Active Substance: LEVOTHYROXINE SODIUM
     Indication: THYROID DISORDER
     Dates: start: 201704, end: 201710

REACTIONS (14)
  - Polymyalgia rheumatica [None]
  - Headache [None]
  - Gamma-glutamyltransferase increased [None]
  - Anaemia [Recovering/Resolving]
  - Abdominal pain upper [Recovered/Resolved]
  - Insomnia [None]
  - Vitamin D decreased [None]
  - C-reactive protein increased [Recovering/Resolving]
  - Fatigue [None]
  - Middle insomnia [None]
  - Angina pectoris [None]
  - Weight decreased [None]
  - Dizziness [Recovered/Resolved]
  - Thrombocytosis [None]

NARRATIVE: CASE EVENT DATE: 2017
